FAERS Safety Report 6501190-7 (Version None)
Quarter: 2009Q4

REPORT INFORMATION
  Report Type: 
  Country: None (occurrence: None)
  Receive Date: 20091216
  Receipt Date: 20090916
  Transmission Date: 20100525
  Serious: No
  Sender: FDA-Public Use
  Company Number: A0807164A

PATIENT
  Age: 38 Year
  Sex: Female

DRUGS (1)
  1. NICOTINE POLACRILEX [Suspect]
     Indication: SMOKING CESSATION THERAPY
     Dates: start: 20090912, end: 20090912

REACTIONS (4)
  - MALAISE [None]
  - PHARYNGEAL OEDEMA [None]
  - THERMAL BURN [None]
  - VOMITING [None]
